FAERS Safety Report 25808548 (Version 2)
Quarter: 2025Q3

REPORT INFORMATION
  Report Type: Spontaneous
  Country: US (occurrence: US)
  Receive Date: 20250916
  Receipt Date: 20250925
  Transmission Date: 20251020
  Serious: Yes (Life-Threatening, Hospitalization)
  Sender: TEVA
  Company Number: US-TEVA-VS-3370880

PATIENT
  Age: 38 Year
  Sex: Female

DRUGS (3)
  1. TIOPRONIN [Suspect]
     Active Substance: TIOPRONIN
     Indication: Cystinuria
     Route: 065
  2. SUCCINYLCHOLINE CHLORIDE [Concomitant]
     Active Substance: SUCCINYLCHOLINE CHLORIDE
     Indication: Product used for unknown indication
     Route: 065
  3. ROCURONIUM [Concomitant]
     Active Substance: ROCURONIUM BROMIDE
     Indication: Neuromuscular blocking therapy
     Route: 065

REACTIONS (2)
  - Myasthenic syndrome [Unknown]
  - Paralysis [Unknown]
